FAERS Safety Report 12570131 (Version 1)
Quarter: 2016Q3

REPORT INFORMATION
  Report Type: Spontaneous
  Country: US (occurrence: US)
  Receive Date: 20160719
  Receipt Date: 20160719
  Transmission Date: 20161109
  Serious: No
  Sender: FDA-Public Use
  Company Number: US-TEVA-667887USA

PATIENT
  Age: 65 Year
  Sex: Male

DRUGS (13)
  1. DULOXETINE. [Concomitant]
     Active Substance: DULOXETINE
  2. PRAVASTATIN. [Concomitant]
     Active Substance: PRAVASTATIN
  3. AZELASTINE [Concomitant]
     Active Substance: AZELASTINE
  4. ZECUITY [Suspect]
     Active Substance: SUMATRIPTAN SUCCINATE
     Indication: MIGRAINE
     Dosage: 6.5 MG /4 HR 1 PATCH  UP TO TWICE DAILY
     Route: 062
     Dates: start: 20160505
  5. DIAZEPAM. [Concomitant]
     Active Substance: DIAZEPAM
  6. METHOCARBAMOL. [Concomitant]
     Active Substance: METHOCARBAMOL
  7. BUTORPHANOL [Concomitant]
     Active Substance: BUTORPHANOL
  8. APAP W/BUTALBITAL [Concomitant]
  9. GEMFIBROZIL. [Concomitant]
     Active Substance: GEMFIBROZIL
  10. METFORMIN [Concomitant]
     Active Substance: METFORMIN HYDROCHLORIDE
  11. SUMATRIPTAN. [Concomitant]
     Active Substance: SUMATRIPTAN
  12. MONTELUKAST [Concomitant]
     Active Substance: MONTELUKAST SODIUM
  13. PANTOPRAZOLE [Concomitant]
     Active Substance: PANTOPRAZOLE SODIUM

REACTIONS (1)
  - Application site irritation [Unknown]

NARRATIVE: CASE EVENT DATE: 201605
